FAERS Safety Report 5941148-X (Version None)
Quarter: 2008Q4

REPORT INFORMATION
  Report Type: 
  Country: None (occurrence: None)
  Receive Date: 20081104
  Receipt Date: 20081023
  Transmission Date: 20090506
  Serious: Yes (Other)
  Sender: FDA-Public Use
  Company Number: GB-PFIZER INC-2008090174

PATIENT
  Sex: Male

DRUGS (3)
  1. EPANUTIN SUSPENSION [Suspect]
  2. GASTROGRAFIN [Concomitant]
  3. GENERAL NUTRIENTS [Concomitant]

REACTIONS (2)
  - GASTROINTESTINAL TUBE INSERTION [None]
  - GASTROSTOMY TUBE INSERTION [None]
